FAERS Safety Report 15653029 (Version 1)
Quarter: 2018Q4

REPORT INFORMATION
  Report Type: Spontaneous
  Country: US (occurrence: US)
  Receive Date: 20181123
  Receipt Date: 20181123
  Transmission Date: 20190205
  Serious: No
  Sender: FDA-Public Use
  Company Number: US-NOVOPROD-604714

PATIENT
  Sex: Female

DRUGS (1)
  1. NOVOLOG [Suspect]
     Active Substance: INSULIN ASPART
     Indication: PRODUCT USED FOR UNKNOWN INDICATION
     Dosage: UNK DOSE THREE TO FOUR TIMES DAILY
     Route: 058

REACTIONS (8)
  - Depression [Unknown]
  - Therapeutic response shortened [Unknown]
  - Neuropathy peripheral [Unknown]
  - Fibromyalgia [Unknown]
  - Blood glucose increased [Unknown]
  - Contusion [Unknown]
  - Immune system disorder [Unknown]
  - Memory impairment [Unknown]
